FAERS Safety Report 7183133-9 (Version None)
Quarter: 2010Q4

REPORT INFORMATION
  Report Type: 
  Country: None (occurrence: None)
  Receive Date: 20101222
  Receipt Date: 20101214
  Transmission Date: 20110411
  Serious: Yes (Life-Threatening, Hospitalization)
  Sender: FDA-Public Use
  Company Number: JP-TYCO HEALTHCARE/MALLINCKRODT-T201002059

PATIENT
  Age: 78 Year
  Sex: Male
  Weight: 72.6 kg

DRUGS (9)
  1. OPTIRAY 350 [Suspect]
     Indication: COMPUTERISED TOMOGRAM ABDOMEN
     Dosage: 100 ML, SINGLE
     Route: 042
     Dates: start: 20100922, end: 20100922
  2. SPIRONOLACTONE [Concomitant]
     Dosage: 25 MG, BID
     Route: 048
  3. URSODEOXYCHOLIC ACID [Concomitant]
     Dosage: 200 MG
     Route: 048
  4. REBAMIPIDE [Concomitant]
     Dosage: 100 MG, TID
     Route: 048
  5. SOLEUCINE/LEUCINE/VALINE COMBINED [Concomitant]
     Dosage: 4.15 G, TID
     Route: 048
  6. ALLOPURINOL [Concomitant]
     Dosage: 100 MG, QD
     Route: 048
  7. OMEPRAZOLE [Concomitant]
     Dosage: 10 MG, QD
     Route: 048
  8. ZOLPIDEM TARTRATE [Concomitant]
     Dosage: 5 MG, QD
     Route: 048
  9. FUROSEMIDE [Concomitant]
     Dosage: 40 MG, QD
     Route: 048

REACTIONS (1)
  - ANAPHYLACTIC SHOCK [None]
